FAERS Safety Report 19426118 (Version 1)
Quarter: 2021Q2

REPORT INFORMATION
  Report Type: Spontaneous
  Country: US (occurrence: US)
  Receive Date: 20210616
  Receipt Date: 20210616
  Transmission Date: 20210717
  Serious: Yes (Hospitalization, Other)
  Sender: FDA-Public Use
  Company Number: US-STANDARD HOMEOPATHIC-2112801

PATIENT
  Age: 6 Year
  Sex: Male

DRUGS (1)
  1. HYLAND^S MOTION SICKNESS TABLETS [Suspect]
     Active Substance: HOMEOPATHICS
     Indication: MOTION SICKNESS
     Route: 048
     Dates: start: 20210604

REACTIONS (1)
  - Seizure [Unknown]

NARRATIVE: CASE EVENT DATE: 20210604
